FAERS Safety Report 8347327-9 (Version None)
Quarter: 2012Q2

REPORT INFORMATION
  Report Type: 
  Country: None (occurrence: None)
  Receive Date: 20120509
  Receipt Date: 20120427
  Transmission Date: 20120825
  Serious: Yes (Hospitalization)
  Sender: FDA-Public Use
  Company Number: JP-SANOFI-AVENTIS-2012SA032211

PATIENT
  Age: 55 Year
  Sex: Female

DRUGS (5)
  1. FLUMARIN [Concomitant]
  2. DICLOFENAC SODIUM [Concomitant]
  3. FAMOTIDINE [Concomitant]
  4. ENOXAPARIN SODIUM [Suspect]
     Indication: UTERINE CANCER
     Route: 058
     Dates: start: 20120330, end: 20120405
  5. MAGNESIUM SULFATE [Concomitant]

REACTIONS (2)
  - HAEMATOMA [None]
  - URETERIC STENOSIS [None]
